FAERS Safety Report 11057307 (Version 1)
Quarter: 2015Q2

REPORT INFORMATION
  Report Type: Report from Study
  Country: CA (occurrence: CA)
  Receive Date: 20150422
  Receipt Date: 20150422
  Transmission Date: 20150821
  Serious: Yes (Death)
  Sender: FDA-Public Use
  Company Number: CA-ABBVIE-15P-028-1379668-00

PATIENT
  Age: 78 Year
  Sex: Male
  Weight: 80.81 kg

DRUGS (1)
  1. LUPRON DEPOT [Suspect]
     Active Substance: LEUPROLIDE ACETATE
     Indication: PROSTATE CANCER
     Route: 030
     Dates: start: 20140822, end: 20141223

REACTIONS (1)
  - Death [Fatal]

NARRATIVE: CASE EVENT DATE: 20150405
